FAERS Safety Report 13652151 (Version 1)
Quarter: 2017Q2

REPORT INFORMATION
  Report Type: Report from Study
  Country: AT (occurrence: AT)
  Receive Date: 20170614
  Receipt Date: 20170614
  Transmission Date: 20170830
  Serious: Yes (Hospitalization)
  Sender: FDA-Public Use
  Company Number: AT-AMGEN-AUTCT2012000535

PATIENT
  Age: 71 Year
  Sex: Female
  Weight: 44 kg

DRUGS (27)
  1. LAEVOLAC [Concomitant]
     Active Substance: LACTULOSE
     Dosage: UNK
     Route: 048
     Dates: start: 20101209, end: 20110910
  2. LASIX [Concomitant]
     Active Substance: FUROSEMIDE
     Dosage: 20 - 40 MG, UNK
     Route: 048
     Dates: start: 20110524, end: 20110910
  3. PASPERTIN [Concomitant]
     Active Substance: METOCLOPRAMIDE HYDROCHLORIDE
     Dosage: 25 GTT, UNK
     Route: 048
     Dates: start: 20110429, end: 20110910
  4. THROMBO ASS [Concomitant]
     Active Substance: ASPIRIN
     Dosage: 75 MG, UNK
     Route: 048
     Dates: start: 201007
  5. PEGYLATED LIPOSOMAL DOXORUBICIN HYDROCHLORIDE [Concomitant]
     Active Substance: DOXORUBICIN HYDROCHLORIDE
     Dosage: 55.6 - 73.5 MG, UNK
     Route: 042
     Dates: start: 20110505, end: 20110701
  6. KALIORAL [Concomitant]
     Dosage: 8 G, UNK
     Route: 048
     Dates: start: 20110615, end: 20110910
  7. CARBOHYDRATES/PROTEINS/MINERALS/VITAMINS, COM [Concomitant]
     Dosage: 1 UNK, UNK
     Route: 048
     Dates: start: 20110412
  8. VALTREX [Concomitant]
     Active Substance: VALACYCLOVIR HYDROCHLORIDE
     Dosage: 500 MG, UNK
     Route: 048
     Dates: start: 20091213, end: 20110910
  9. LOCACORTEN-VIOFORM [Concomitant]
     Dosage: 1 UNK, UNK
     Route: 062
     Dates: start: 20110412, end: 20110416
  10. PANTOPRAZOLE [Concomitant]
     Active Substance: PANTOPRAZOLE
     Dosage: 20 MG, UNK
     Route: 048
     Dates: start: 20110412
  11. OMNIFLORA [Concomitant]
     Dosage: 1 UNK, UNK
     Route: 048
     Dates: start: 20110412, end: 20110901
  12. DALACIN                            /00166002/ [Concomitant]
     Active Substance: CLINDAMYCIN HYDROCHLORIDE
     Dosage: 600 MG, UNK
     Route: 048
     Dates: start: 20110407, end: 20110416
  13. AMG 386 [Suspect]
     Active Substance: TREBANANIB
     Indication: OVARIAN CANCER
     Dosage: UNK
     Route: 065
     Dates: start: 20110505, end: 20110622
  14. DIMETICON [Concomitant]
     Dosage: 80 MG, UNK
     Route: 048
     Dates: start: 20110608, end: 20110910
  15. CONCOR [Concomitant]
     Active Substance: BISOPROLOL FUMARATE
     Dosage: 5 MG, UNK
     Route: 048
     Dates: start: 201007, end: 20110910
  16. VITAMINS WITH MINERALS [Concomitant]
     Active Substance: MINERALS\VITAMINS
     Dosage: 2 UNK, UNK
     Route: 048
  17. LENDORM [Concomitant]
     Active Substance: BROTIZOLAM
     Dosage: 0.25 MG, UNK
     Route: 048
     Dates: start: 20110412, end: 20110910
  18. CALCIUM CHLORIDE. [Concomitant]
     Active Substance: CALCIUM CHLORIDE
     Dosage: UNK
     Route: 042
     Dates: start: 20110622
  19. POTASSIUM CHLORIDE. [Concomitant]
     Active Substance: POTASSIUM CHLORIDE
     Dosage: 40 UNK, UNK
     Route: 042
     Dates: start: 20110622, end: 20110622
  20. NAVOBAN [Concomitant]
     Active Substance: TROPISETRON HYDROCHLORIDE
     Dosage: 5 MG, UNK
     Route: 048
     Dates: start: 20110429, end: 20110910
  21. FORTECORTIN [Concomitant]
     Active Substance: DEXAMETHASONE
     Dosage: 8 MG, UNK
     Route: 048
     Dates: start: 20110429, end: 20110511
  22. LOVENOX [Concomitant]
     Active Substance: ENOXAPARIN SODIUM
     Dosage: 20 MG, UNK
     Route: 058
     Dates: start: 20110505, end: 20110910
  23. CORMAGNESIN [Concomitant]
     Dosage: 1 UNK, UNK
     Route: 042
     Dates: start: 20110622, end: 20110622
  24. LACTATED RINGERS [Concomitant]
     Active Substance: CALCIUM CHLORIDE\POTASSIUM CHLORIDE\SODIUM CHLORIDE\SODIUM LACTATE
     Dosage: 1000 ML, UNK
     Route: 042
     Dates: start: 20110622, end: 20110622
  25. NEUROBION FORTE [Concomitant]
     Active Substance: CYANOCOBALAMIN\PYRIDOXINE HYDROCHLORIDE\THIAMINE DISULFIDE
     Dosage: 100 MG, UNK
     Route: 048
     Dates: start: 20110412, end: 20110910
  26. MUCOBENE [Concomitant]
     Dosage: 600 MG, UNK
     Route: 048
     Dates: start: 20110412, end: 20110910
  27. MOTILIUM [Concomitant]
     Active Substance: DOMPERIDONE
     Dosage: 30 MG, UNK
     Route: 050
     Dates: start: 20110429, end: 20110910

REACTIONS (1)
  - Generalised oedema [Recovered/Resolved]

NARRATIVE: CASE EVENT DATE: 20110628
